FAERS Safety Report 9299322 (Version 2)
Quarter: 2013Q3

REPORT INFORMATION
  Report Type: Spontaneous
  Country: US (occurrence: US)
  Receive Date: 20130520
  Receipt Date: 20130924
  Transmission Date: 20140515
  Serious: Yes (Other)
  Sender: FDA-Public Use
  Company Number: US-009507513-1305USA010096

PATIENT
  Sex: Male

DRUGS (4)
  1. JANUMET [Suspect]
     Indication: TYPE 2 DIABETES MELLITUS
     Dosage: 1 DF, QD
     Route: 048
     Dates: start: 2011
  2. NEURONTIN [Concomitant]
  3. DOXAZOSIN MESYLATE [Concomitant]
  4. ALBUTEROL [Concomitant]

REACTIONS (1)
  - Prostate cancer [Unknown]
